FAERS Safety Report 25085493 (Version 1)
Quarter: 2025Q1

REPORT INFORMATION
  Report Type: Spontaneous
  Country: US (occurrence: None)
  Receive Date: 20250317
  Receipt Date: 20250317
  Transmission Date: 20250409
  Serious: Yes (Hospitalization)
  Sender: FDA-CTU
  Company Number: None

PATIENT
  Age: 40 Year
  Sex: Female

DRUGS (1)
  1. ADEMPAS [Suspect]
     Active Substance: RIOCIGUAT
     Indication: Pulmonary hypertension
     Dosage: FREQUENCY : TWICE A DAY;?
     Route: 048
     Dates: start: 20210209

REACTIONS (5)
  - Breath sounds abnormal [None]
  - Respiratory tract congestion [None]
  - Nasal congestion [None]
  - Sinus congestion [None]
  - Ear pruritus [None]

NARRATIVE: CASE EVENT DATE: 20250221
